FAERS Safety Report 5752147-5 (Version None)
Quarter: 2008Q2

REPORT INFORMATION
  Report Type: 
  Country: None (occurrence: None)
  Receive Date: 20080527
  Receipt Date: 20080515
  Transmission Date: 20081010
  Serious: Yes (Other)
  Sender: FDA-Public Use
  Company Number: S07-USA-06214-01

PATIENT
  Age: 43 Year
  Sex: Male

DRUGS (2)
  1. CAMPRAL [Suspect]
     Indication: ALCOHOLISM
     Dosage: 666 MG TID PO
     Route: 048
     Dates: start: 20071113
  2. OXYCONTIN [Concomitant]

REACTIONS (5)
  - ATRIAL FIBRILLATION [None]
  - CONDITION AGGRAVATED [None]
  - DYSPNOEA EXERTIONAL [None]
  - PALPITATIONS [None]
  - RHINITIS [None]
